FAERS Safety Report 21741349 (Version 1)
Quarter: 2022Q4

REPORT INFORMATION
  Report Type: Spontaneous
  Country: US (occurrence: US)
  Receive Date: 20221216
  Receipt Date: 20221216
  Transmission Date: 20230113
  Serious: No
  Sender: FDA-Public Use
  Company Number: US-BAYER-2022P028118

PATIENT
  Age: 15 Year
  Sex: Female

DRUGS (1)
  1. MIRENA [Suspect]
     Active Substance: LEVONORGESTREL
     Dosage: 20?G/DAY
     Route: 015
     Dates: start: 20220830, end: 20220906

REACTIONS (4)
  - Device dislocation [Recovered/Resolved]
  - Abdominal pain lower [None]
  - Heavy menstrual bleeding [None]
  - Medical device discomfort [None]

NARRATIVE: CASE EVENT DATE: 20220906
